FAERS Safety Report 6762897-X (Version None)
Quarter: 2010Q2

REPORT INFORMATION
  Report Type: 
  Country: None (occurrence: None)
  Receive Date: 20100608
  Receipt Date: 20100608
  Transmission Date: 20101027
  Serious: Yes (Other)
  Sender: FDA-Public Use
  Company Number: None

PATIENT
  Age: 34 Year
  Sex: Female

DRUGS (4)
  1. AMITRIPTYLINE HCL [Suspect]
     Indication: BACK PAIN
     Dosage: 100 MG AT BEDTIME DAILY PO
     Route: 048
     Dates: start: 20090310, end: 20090408
  2. TRAMADOL HCL [Suspect]
     Indication: BACK PAIN
     Dosage: 100 MG FOUR TIMES DAILY PO
     Route: 048
     Dates: start: 20090310, end: 20100120
  3. CYCLOBEZAPRIN [Concomitant]
  4. MELOXICAM [Concomitant]

REACTIONS (2)
  - CONVULSION [None]
  - INCORRECT DOSE ADMINISTERED [None]
